FAERS Safety Report 5141811-7 (Version None)
Quarter: 2006Q4

REPORT INFORMATION
  Report Type: 
  Country: None (occurrence: None)
  Receive Date: 20061027
  Receipt Date: 20061017
  Transmission Date: 20070319
  Serious: Yes (Other)
  Sender: FDA-Public Use
  Company Number: 2006112542

PATIENT
  Age: 42 Year
  Sex: Male

DRUGS (4)
  1. CAMPTOSAR [Suspect]
     Dosage: INTRAVENOUS
     Route: 042
     Dates: start: 20060822, end: 20060822
  2. FLUOROURACIL [Suspect]
     Dosage: INTRAVENOUS
     Route: 042
     Dates: start: 20060724, end: 20060822
  3. CALCIUM LEVOFOLINATE (CALCIUM LEVOFOLINATE) [Concomitant]
  4. OXALIPLATIN [Concomitant]

REACTIONS (1)
  - DEPRESSED LEVEL OF CONSCIOUSNESS [None]
